FAERS Safety Report 10993770 (Version 2)
Quarter: 2015Q2

REPORT INFORMATION
  Report Type: Report from Study
  Country: BE (occurrence: None)
  Receive Date: 20150403
  Receipt Date: 20150424
  Transmission Date: 20150821
  Serious: Yes (Hospitalization, Other)
  Sender: FDA-Public Use
  Company Number: ADR-2015-00627

PATIENT
  Age: 60 Year
  Sex: Female

DRUGS (1)
  1. LIORESAL [Suspect]
     Active Substance: BACLOFEN
     Indication: CEREBROVASCULAR ACCIDENT

REACTIONS (7)
  - Pruritus [None]
  - Drug administration error [None]
  - Underdose [None]
  - General physical health deterioration [None]
  - Confusional state [None]
  - Muscle spasms [None]
  - Accidental overdose [None]

NARRATIVE: CASE EVENT DATE: 20141008
